FAERS Safety Report 21974127 (Version 1)
Quarter: 2023Q1

REPORT INFORMATION
  Report Type: Spontaneous
  Country: PR (occurrence: PR)
  Receive Date: 20230209
  Receipt Date: 20230209
  Transmission Date: 20230417
  Serious: No
  Sender: FDA-Public Use
  Company Number: PR-JNJFOC-20230165208

PATIENT
  Age: 5 Decade
  Sex: Female
  Weight: 66.6 kg

DRUGS (6)
  1. ZAVESCA [Suspect]
     Active Substance: MIGLUSTAT
     Indication: Niemann-Pick disease
     Dosage: TAKE 1 CAPSULE BY ORAL ROUTE ONCE DAILY FOR 2 WEEKS, THEN BID FOR 60 DAYS
     Route: 048
  2. ZYRTEC [Concomitant]
     Active Substance: CETIRIZINE HYDROCHLORIDE
     Route: 048
  3. GLYCOPYRROLATE [Concomitant]
     Active Substance: GLYCOPYRROLATE
     Dosage: 1 TABLET TWICE DAILY
     Route: 048
  4. GLYCOPYRROLATE [Concomitant]
     Active Substance: GLYCOPYRROLATE
     Route: 048
  5. FLUOXETINE HYDROCHLORIDE [Concomitant]
     Active Substance: FLUOXETINE HYDROCHLORIDE
     Route: 048
  6. NEURIN [CYANOCOBALAMIN] [Concomitant]
     Dosage: 600-600 MCG: 1 TABLETS SUBLINGUAL BY SUBLINGUAL ROUTE ONCE A DAY
     Route: 060

REACTIONS (4)
  - Fatigue [Unknown]
  - Asthenia [Unknown]
  - Speech disorder [Unknown]
  - Dysphonia [Unknown]
